FAERS Safety Report 10415443 (Version 2)
Quarter: 2014Q3

REPORT INFORMATION
  Report Type: Report from Study
  Country: AU (occurrence: AU)
  Receive Date: 20140828
  Receipt Date: 20140912
  Transmission Date: 20150326
  Serious: Yes (Hospitalization)
  Sender: FDA-Public Use
  Company Number: PHHY2014AU106676

PATIENT
  Sex: Female

DRUGS (1)
  1. CLOZARIL [Suspect]
     Active Substance: CLOZAPINE
     Indication: SCHIZOPHRENIA
     Dosage: 200 MG PER DAY
     Route: 048
     Dates: start: 20140807, end: 20140829

REACTIONS (3)
  - Myocarditis [Unknown]
  - C-reactive protein increased [Unknown]
  - Troponin increased [Unknown]
